FAERS Safety Report 24714532 (Version 2)
Quarter: 2024Q4

REPORT INFORMATION
  Report Type: Report from Study
  Country: US (occurrence: US)
  Receive Date: 20241209
  Receipt Date: 20241229
  Transmission Date: 20250115
  Serious: Yes (Other)
  Sender: JOHNSON AND JOHNSON
  Company Number: US-JNJFOC-20241214986

PATIENT
  Age: 49 Year
  Sex: Female

DRUGS (3)
  1. SPRAVATO [Suspect]
     Active Substance: ESKETAMINE
     Indication: Depression
     Dosage: ?56 MG, 2 TOTAL DOSES?
     Route: 045
     Dates: start: 20241119, end: 20241125
  2. SPRAVATO [Suspect]
     Active Substance: ESKETAMINE
     Dosage: ?84 MG, 3 TOTAL DOSES?
     Route: 045
     Dates: start: 20241127, end: 20241205
  3. KLONOPIN [Concomitant]
     Active Substance: CLONAZEPAM
     Indication: Anxiety
     Route: 065

REACTIONS (9)
  - Hallucination [Unknown]
  - Hypoaesthesia [Unknown]
  - Agitation [Unknown]
  - Hyperhidrosis [Unknown]
  - Dissociation [Unknown]
  - Nausea [Unknown]
  - Anxiety [Unknown]
  - Hypertension [Unknown]
  - Withdrawal syndrome [Unknown]

NARRATIVE: CASE EVENT DATE: 20241101
